FAERS Safety Report 19448778 (Version 6)
Quarter: 2025Q2

REPORT INFORMATION
  Report Type: Spontaneous
  Country: US (occurrence: US)
  Receive Date: 20210622
  Receipt Date: 20250606
  Transmission Date: 20250717
  Serious: Yes (Hospitalization, Other)
  Sender: AMNEAL
  Company Number: US-AMNEAL PHARMACEUTICALS-2021-AMRX-02243

PATIENT
  Sex: Female
  Weight: 21.769 kg

DRUGS (7)
  1. VIGABATRIN [Suspect]
     Active Substance: VIGABATRIN
     Indication: Illness
     Dosage: 625 MILLIGRAM, BID
     Route: 048
  2. VIGABATRIN [Suspect]
     Active Substance: VIGABATRIN
     Dosage: 750 MILLIGRAM, BID (DOSE INCREASED BASED UPON HEIGHT AND WEIGHT)
     Route: 048
  3. VIGABATRIN [Suspect]
     Active Substance: VIGABATRIN
     Dosage: 625 MILLIGRAM, BID
     Route: 048
  4. VIGABATRIN [Suspect]
     Active Substance: VIGABATRIN
     Dosage: 750 MILLIGRAM, 2X/DAY (MIX 2 PACKETS IN 20 ML OF WATER AND GIVE/TAKE 15 ML (750 MG) TWICE A DAY. DIS
     Route: 065
  5. KEPPRA [Concomitant]
     Active Substance: LEVETIRACETAM
     Indication: Product used for unknown indication
     Route: 065
  6. CLOBAZAM [Concomitant]
     Active Substance: CLOBAZAM
     Indication: Product used for unknown indication
     Route: 065
  7. CHILDREN^S ALL DAY ALLERGY [Concomitant]
     Indication: Product used for unknown indication
     Route: 065

REACTIONS (8)
  - COVID-19 [Unknown]
  - Enterovirus infection [Unknown]
  - Pneumonia [Unknown]
  - Seizure [Unknown]
  - Seizure [Unknown]
  - Influenza [Unknown]
  - Product dose omission issue [Unknown]
  - Product use issue [Unknown]
